FAERS Safety Report 9361907 (Version 1)
Quarter: 2013Q2

REPORT INFORMATION
  Report Type: Spontaneous
  Country: FR (occurrence: FR)
  Receive Date: 20130621
  Receipt Date: 20130621
  Transmission Date: 20140414
  Serious: Yes (Other)
  Sender: FDA-Public Use
  Company Number: FR-BAUSCH-BL-2013-003625

PATIENT
  Age: 73 Year
  Sex: Male

DRUGS (4)
  1. YELLOX 0.9 MG/ML EYE DROPS, SOLUTION [Suspect]
     Indication: POSTOPERATIVE CARE
     Route: 047
     Dates: start: 20130514, end: 20130529
  2. YELLOX 0.9 MG/ML EYE DROPS, SOLUTION [Suspect]
     Indication: CATARACT OPERATION
     Route: 047
     Dates: start: 20130523, end: 20130606
  3. CHIBROCADRON [Suspect]
     Indication: POSTOPERATIVE CARE
     Route: 047
     Dates: start: 20130514, end: 20130529
  4. CHIBROCADRON [Suspect]
     Indication: CATARACT OPERATION
     Route: 047
     Dates: start: 20130523, end: 20130606

REACTIONS (1)
  - Cystoid macular oedema [Unknown]
